FAERS Safety Report 5023893-6 (Version None)
Quarter: 2006Q2

REPORT INFORMATION
  Report Type: 
  Country: None (occurrence: None)
  Receive Date: 20060607
  Receipt Date: 20060523
  Transmission Date: 20061013
  Serious: Yes (Hospitalization)
  Sender: FDA-Public Use
  Company Number: 2006US001101

PATIENT
  Age: 39 Year
  Sex: Male

DRUGS (3)
  1. PROGRAF [Suspect]
     Indication: PROPHYLAXIS AGAINST TRANSPLANT REJECTION
     Dosage: 6 MG, BID, ORAL
     Route: 048
     Dates: start: 20051006
  2. MYCOPHENOLATE MOFETIL [Suspect]
     Indication: PROPHYLAXIS AGAINST TRANSPLANT REJECTION
     Dosage: 1000 MG, BID, ORAL
     Route: 048
     Dates: start: 20051006
  3. PREDNISONE TAB [Suspect]
     Indication: PROPHYLAXIS AGAINST TRANSPLANT REJECTION
     Dosage: 12.5 MG, UID/QD, ORAL
     Route: 048
     Dates: start: 20051007

REACTIONS (8)
  - DIABETIC KETOACIDOSIS [None]
  - ENTEROBACTER INFECTION [None]
  - HYPERTENSIVE CRISIS [None]
  - PYELONEPHRITIS [None]
  - SEPSIS [None]
  - URETERIC STENOSIS [None]
  - URINARY INCONTINENCE [None]
  - URINARY TRACT DISORDER [None]
